FAERS Safety Report 5764676-9 (Version None)
Quarter: 2008Q2

REPORT INFORMATION
  Report Type: 
  Country: None (occurrence: None)
  Receive Date: 20080611
  Receipt Date: 20080603
  Transmission Date: 20081010
  Serious: Yes (Other)
  Sender: FDA-Public Use
  Company Number: PHHY2008AU09786

PATIENT

DRUGS (2)
  1. RITALIN [Suspect]
     Indication: ATTENTION DEFICIT/HYPERACTIVITY DISORDER
  2. DEXAMFETAMINE [Concomitant]

REACTIONS (5)
  - FATIGUE [None]
  - MALAISE [None]
  - SUICIDAL IDEATION [None]
  - WEIGHT DECREASED [None]
  - WITHDRAWAL SYNDROME [None]
